FAERS Safety Report 9434689 (Version 1)
Quarter: 2013Q3

REPORT INFORMATION
  Report Type: Spontaneous
  Country: US (occurrence: None)
  Receive Date: 20130731
  Receipt Date: 20130731
  Transmission Date: 20140515
  Serious: Yes (Hospitalization)
  Sender: FDA-Public Use
  Company Number: None

PATIENT
  Age: 84 Year
  Sex: Female

DRUGS (1)
  1. MIRTAZAPINE [Suspect]
     Indication: DEMENTIA
     Dosage: 15MG BEDTIME PO
     Route: 048
     Dates: start: 20130616, end: 20130728

REACTIONS (4)
  - Mental status changes [None]
  - Asthenia [None]
  - Blood sodium decreased [None]
  - Cardiac failure congestive [None]
